FAERS Safety Report 4958396-8 (Version None)
Quarter: 2006Q1

REPORT INFORMATION
  Report Type: 
  Country: None (occurrence: None)
  Receive Date: 20060329
  Receipt Date: 20060329
  Transmission Date: 20060701
  Serious: Yes (Hospitalization, Disabling)
  Sender: FDA-Public Use
  Company Number: None

PATIENT
  Age: 51 Year
  Sex: Male
  Weight: 109 kg

DRUGS (2)
  1. BACTRIM DS [Suspect]
     Indication: EPIDIDYMITIS
  2. CIPRO [Suspect]

REACTIONS (2)
  - RASH MACULAR [None]
  - TREATMENT NONCOMPLIANCE [None]
